FAERS Safety Report 16298195 (Version 2)
Quarter: 2020Q1

REPORT INFORMATION
  Report Type: Spontaneous
  Country: CA (occurrence: CA)
  Receive Date: 20190510
  Receipt Date: 20200117
  Transmission Date: 20200409
  Serious: Yes (Other)
  Sender: FDA-Public Use
  Company Number: CA-SA-2019SA121485

PATIENT
  Age: 55 Year
  Sex: Female
  Weight: 63 kg

DRUGS (9)
  1. TOCILIZUMAB. [Concomitant]
     Active Substance: TOCILIZUMAB
     Indication: PRODUCT USED FOR UNKNOWN INDICATION
     Dosage: 8 MG/KG, Q4W
     Route: 065
     Dates: start: 201303, end: 201306
  2. SULFASALAZINE. [Suspect]
     Active Substance: SULFASALAZINE
     Indication: RHEUMATOID ARTHRITIS
     Dosage: UNK, UNK
     Route: 065
  3. LEFLUNOMIDE. [Suspect]
     Active Substance: LEFLUNOMIDE
     Indication: PRODUCT USED FOR UNKNOWN INDICATION
     Dosage: UNK UNK, UNK
     Route: 048
  4. METHOTREXATE. [Suspect]
     Active Substance: METHOTREXATE
     Indication: RHEUMATOID ARTHRITIS
     Dosage: 25 MG, QW
     Route: 058
  5. ENBREL [Suspect]
     Active Substance: ETANERCEPT
     Indication: RHEUMATOID ARTHRITIS
     Dosage: 50 MG, QW
     Route: 065
     Dates: start: 201111, end: 201201
  6. CERTOLIZUMAB PEGOL [Concomitant]
     Active Substance: CERTOLIZUMAB PEGOL
     Indication: PRODUCT USED FOR UNKNOWN INDICATION
     Dosage: 400 MG, EVERY TWO WEEKS
     Route: 065
     Dates: start: 201705, end: 201801
  7. HYDROXYCHLOROQUINE SULFATE. [Concomitant]
     Active Substance: HYDROXYCHLOROQUINE SULFATE
     Dosage: UNK, UNK
  8. CELEBREX [Concomitant]
     Active Substance: CELECOXIB
     Indication: PRODUCT USED FOR UNKNOWN INDICATION
     Dosage: UNK, UNK
  9. INFLIXIMAB [Suspect]
     Active Substance: INFLIXIMAB
     Indication: CROHN^S DISEASE
     Dosage: UNK, UNK
     Route: 065

REACTIONS (13)
  - Pyrexia [Unknown]
  - Pyelonephritis [Unknown]
  - Nasopharyngitis [Unknown]
  - Cough [Unknown]
  - Pain [Unknown]
  - Bronchitis [Unknown]
  - Pneumonia [Unknown]
  - Nausea [Unknown]
  - Influenza [Unknown]
  - Sinusitis [Unknown]
  - Rash [Unknown]
  - Aphonia [Unknown]
  - Diarrhoea [Unknown]
